FAERS Safety Report 6756352-0 (Version None)
Quarter: 2010Q2

REPORT INFORMATION
  Report Type: 
  Country: None (occurrence: None)
  Receive Date: 20100604
  Receipt Date: 20100527
  Transmission Date: 20101027
  Serious: Yes (Hospitalization)
  Sender: FDA-Public Use
  Company Number: DE-ROCHE-706884

PATIENT
  Sex: Female
  Weight: 67 kg

DRUGS (6)
  1. TOCILIZUMAB [Suspect]
     Indication: RHEUMATOID ARTHRITIS
     Route: 042
     Dates: start: 20091001, end: 20100301
  2. METHOTREXATE [Suspect]
     Indication: RHEUMATOID ARTHRITIS
     Route: 048
     Dates: start: 20080701, end: 20100301
  3. PREDNISOLONE [Concomitant]
     Indication: RHEUMATOID ARTHRITIS
     Route: 048
     Dates: start: 19920101
  4. ALENDRONSAEURE [Concomitant]
     Indication: OSTEOPOROSIS
     Route: 048
     Dates: start: 20080401
  5. KATADOLON [Concomitant]
     Indication: RHEUMATOID ARTHRITIS
     Route: 048
     Dates: start: 20080401
  6. OMEPRAZOLE [Concomitant]
     Indication: PROPHYLAXIS
     Route: 048

REACTIONS (1)
  - SQUAMOUS CELL CARCINOMA [None]
